FAERS Safety Report 7464596-8 (Version None)
Quarter: 2011Q2

REPORT INFORMATION
  Report Type: 
  Country: None (occurrence: None)
  Receive Date: 20110509
  Receipt Date: 20110502
  Transmission Date: 20111010
  Serious: Yes (Other)
  Sender: FDA-Public Use
  Company Number: NL-NOVOPROD-327505

PATIENT
  Age: 57 Year
  Sex: Female

DRUGS (4)
  1. METFORMIN [Concomitant]
  2. VICTOZA [Suspect]
     Indication: DIABETES MELLITUS
     Dosage: 0.6 MG, QD
     Route: 065
     Dates: start: 20100701
  3. TOLBUTAMIDE [Concomitant]
  4. VICTOZA [Suspect]
     Dosage: 1.8 MG, QD
     Dates: start: 20101101

REACTIONS (1)
  - CEREBROVASCULAR ACCIDENT [None]
